FAERS Safety Report 24778889 (Version 1)
Quarter: 2024Q4

REPORT INFORMATION
  Report Type: Spontaneous
  Country: US (occurrence: US)
  Receive Date: 20241226
  Receipt Date: 20241226
  Transmission Date: 20250115
  Serious: Yes (Other)
  Sender: ALEXION PHARMACEUTICALS
  Company Number: US-AstraZeneca-202412USA017920US

PATIENT
  Age: 64 Year

DRUGS (9)
  1. CRESTOR [Suspect]
     Active Substance: ROSUVASTATIN CALCIUM
     Indication: Hyperlipidaemia
  2. CRESTOR [Suspect]
     Active Substance: ROSUVASTATIN CALCIUM
     Route: 048
  3. CRESTOR [Suspect]
     Active Substance: ROSUVASTATIN CALCIUM
  4. CRESTOR [Suspect]
     Active Substance: ROSUVASTATIN CALCIUM
     Route: 048
  5. BOSUTINIB [Concomitant]
     Active Substance: BOSUTINIB
     Indication: Chronic myeloid leukaemia
     Dosage: 300 MG/D
     Route: 065
  6. BOSUTINIB [Concomitant]
     Active Substance: BOSUTINIB
     Dosage: 300 MG/D
     Route: 065
  7. BOSUTINIB [Concomitant]
     Active Substance: BOSUTINIB
     Dosage: 100 MG/D
     Route: 065
  8. BOSUTINIB [Concomitant]
     Active Substance: BOSUTINIB
     Dosage: 100 MG/D
     Route: 065
  9. ALDACTONE [Concomitant]
     Active Substance: SPIRONOLACTONE

REACTIONS (6)
  - Chronic myeloid leukaemia [Unknown]
  - Pleural effusion [Unknown]
  - Abdominal distension [Unknown]
  - Neuralgia [Unknown]
  - Aspiration pleural cavity [Unknown]
  - Ovarian cancer stage III [Unknown]
